FAERS Safety Report 6503444-7 (Version None)
Quarter: 2009Q4

REPORT INFORMATION
  Report Type: 
  Country: None (occurrence: None)
  Receive Date: 20091217
  Receipt Date: 20091211
  Transmission Date: 20100525
  Serious: Yes (Other)
  Sender: FDA-Public Use
  Company Number: US-ROCHE-602436

PATIENT
  Sex: Female
  Weight: 62.1 kg

DRUGS (6)
  1. BEVACIZUMAB [Suspect]
     Indication: DRUG USE FOR UNKNOWN INDICATION
     Route: 065
  2. BEVACIZUMAB [Suspect]
     Route: 065
  3. CAPECITABINE [Suspect]
     Route: 048
     Dates: start: 20080630, end: 20090713
  4. CAPECITABINE [Suspect]
     Dosage: FREQUENCY REPORTED AS 1000 MG TWICE DAILY 2 WEEKS ON AND ONE WEEK OFF
     Route: 048
     Dates: start: 20090717, end: 20091001
  5. ZOMETA [Concomitant]
  6. ZOMETA [Concomitant]

REACTIONS (10)
  - ABDOMINAL PAIN UPPER [None]
  - ASTHENIA [None]
  - DEHYDRATION [None]
  - DIARRHOEA HAEMORRHAGIC [None]
  - FATIGUE [None]
  - MALIGNANT NEOPLASM PROGRESSION [None]
  - NAUSEA [None]
  - SKIN FISSURES [None]
  - TOOTH EXTRACTION [None]
  - VOMITING [None]
